FAERS Safety Report 6287205-2 (Version None)
Quarter: 2009Q3

REPORT INFORMATION
  Report Type: 
  Country: None (occurrence: None)
  Receive Date: 20090728
  Receipt Date: 20090717
  Transmission Date: 20100115
  Serious: Yes (Life-Threatening)
  Sender: FDA-Public Use
  Company Number: EE-PFIZER INC-2009214511

PATIENT
  Age: 73 Year

DRUGS (2)
  1. SERTRALINE HCL [Suspect]
     Dosage: 80 MG, 2X/DAY
  2. RUPATADINE [Suspect]
     Indication: NASOPHARYNGITIS
     Dosage: 10 MG, UNK

REACTIONS (5)
  - DRUG INTERACTION [None]
  - SINUS BRADYCARDIA [None]
  - SUDDEN DEATH [None]
  - SYNCOPE [None]
  - TORSADE DE POINTES [None]
